FAERS Safety Report 9673391 (Version 2)
Quarter: 2013Q4

REPORT INFORMATION
  Report Type: Spontaneous
  Country: US (occurrence: US)
  Receive Date: 20131106
  Receipt Date: 20131202
  Transmission Date: 20140711
  Serious: Yes (Other)
  Sender: FDA-Public Use
  Company Number: US-AMGEN-USASP2013070743

PATIENT
  Age: 48 Year
  Sex: Female

DRUGS (2)
  1. ENBREL [Suspect]
     Indication: PSORIASIS
     Dosage: 50 MG, 2 TIMES/WK
     Route: 058
     Dates: start: 20040401
  2. ENBREL [Suspect]
     Indication: PSORIATIC ARTHROPATHY

REACTIONS (14)
  - Tooth infection [Not Recovered/Not Resolved]
  - Psoriatic arthropathy [Not Recovered/Not Resolved]
  - Arthralgia [Unknown]
  - Drug effect decreased [Not Recovered/Not Resolved]
  - Back pain [Unknown]
  - Musculoskeletal pain [Unknown]
  - Pain [Unknown]
  - Pain in extremity [Unknown]
  - Skin plaque [Unknown]
  - Injection site bruising [Unknown]
  - Chest pain [Unknown]
  - Psoriasis [Not Recovered/Not Resolved]
  - Injection site erythema [Unknown]
  - Injection site pain [Unknown]
